FAERS Safety Report 8176643-9 (Version None)
Quarter: 2012Q1

REPORT INFORMATION
  Report Type: 
  Country: None (occurrence: None)
  Receive Date: 20120228
  Receipt Date: 20120213
  Transmission Date: 20120608
  Serious: Yes (Hospitalization)
  Sender: FDA-Public Use
  Company Number: 1000028396

PATIENT
  Sex: Male

DRUGS (2)
  1. VIIBRYD [Suspect]
     Dosage: 20 MG (20 MG), 30 MG (30 MG)
  2. VERAPAMIL [Concomitant]

REACTIONS (1)
  - SYNCOPE [None]
